FAERS Safety Report 7635258-9 (Version None)
Quarter: 2011Q3

REPORT INFORMATION
  Report Type: 
  Country: None (occurrence: None)
  Receive Date: 20110726
  Receipt Date: 20110713
  Transmission Date: 20111222
  Serious: Yes (Other)
  Sender: FDA-Public Use
  Company Number: CH-CELGENEUS-151-50794-11071232

PATIENT
  Sex: Female

DRUGS (1)
  1. VIDAZA [Suspect]
     Dosage: 75 MILLIGRAM/SQ. METER
     Route: 065

REACTIONS (4)
  - TONGUE ULCERATION [None]
  - THROMBOCYTOPENIA [None]
  - PURE WHITE CELL APLASIA [None]
  - INJECTION SITE RASH [None]
